FAERS Safety Report 26009030 (Version 1)
Quarter: 2025Q4

REPORT INFORMATION
  Report Type: Spontaneous
  Country: US (occurrence: US)
  Receive Date: 20251107
  Receipt Date: 20251107
  Transmission Date: 20260117
  Serious: No
  Sender: ALEXION PHARMACEUTICALS
  Company Number: US-009507513-2347002

PATIENT
  Sex: Female

DRUGS (6)
  1. LYNPARZA [Suspect]
     Active Substance: OLAPARIB
     Indication: Ovarian cancer recurrent
     Dosage: BID ON DAYS 1-28 OF A 28 DAY CYCLE
  2. LYNPARZA [Suspect]
     Active Substance: OLAPARIB
     Indication: Fallopian tube cancer
  3. LYNPARZA [Suspect]
     Active Substance: OLAPARIB
     Indication: Peritoneal sarcoma
  4. CERALASERTIB [Suspect]
     Active Substance: CERALASERTIB
     Indication: Ovarian cancer
     Dosage: TWICE DAILY (BID) ON DAYS 1-14
  5. CERALASERTIB [Suspect]
     Active Substance: CERALASERTIB
     Indication: Fallopian tube cancer
  6. CERALASERTIB [Suspect]
     Active Substance: CERALASERTIB
     Indication: Peritoneal sarcoma

REACTIONS (1)
  - Therapy partial responder [Unknown]
